FAERS Safety Report 23643530 (Version 1)
Quarter: 2024Q1

REPORT INFORMATION
  Report Type: Spontaneous
  Country: US (occurrence: None)
  Receive Date: 20240316
  Receipt Date: 20240316
  Transmission Date: 20240410
  Serious: Yes (Death)
  Sender: FDA-Public Use
  Company Number: None

PATIENT
  Age: 76 Year
  Sex: Female
  Weight: 59.4 kg

DRUGS (11)
  1. FLECAINIDE [Suspect]
     Active Substance: FLECAINIDE
     Indication: Atrial fibrillation
     Dosage: FREQUENCY : TWICE A DAY; ORAL
     Route: 048
     Dates: start: 20231118
  2. ATORVASTATIN [Concomitant]
     Active Substance: ATORVASTATIN
  3. METOPROLOL SUCCINATE [Concomitant]
     Active Substance: METOPROLOL SUCCINATE
  4. XARELTO [Concomitant]
     Active Substance: RIVAROXABAN
  5. PANTOPRAZOLE SODIUM [Concomitant]
     Active Substance: PANTOPRAZOLE SODIUM
  6. METOCLOPRAMIDE [Concomitant]
     Active Substance: METOCLOPRAMIDE
  7. Carbidopa Levo [Concomitant]
  8. CALCIUM CITRATE [Concomitant]
     Active Substance: CALCIUM CITRATE
  9. VITAMIN D3 [Concomitant]
     Active Substance: CHOLECALCIFEROL
  10. Colace Stool Softener [Concomitant]
  11. Thorne Iron Bisglycinate [Concomitant]

REACTIONS (9)
  - Atrial fibrillation [None]
  - Confusional state [None]
  - Extra dose administered [None]
  - Incoherent [None]
  - Ventricular tachycardia [None]
  - Cardiogenic shock [None]
  - Product label issue [None]
  - Accidental overdose [None]
  - Product communication issue [None]

NARRATIVE: CASE EVENT DATE: 20231221
